FAERS Safety Report 10960309 (Version 1)
Quarter: 2015Q1

REPORT INFORMATION
  Report Type: Spontaneous
  Country: IT (occurrence: None)
  Receive Date: 20150325
  Receipt Date: 20150325
  Transmission Date: 20150721
  Serious: Yes (Other)
  Sender: FDA-Public Use
  Company Number: 2752989

PATIENT
  Age: 75 Year
  Sex: Male
  Weight: 86 kg

DRUGS (5)
  1. OXALIPLATIN. [Suspect]
     Active Substance: OXALIPLATIN
     Indication: RECTAL CANCER
     Dosage: 127.5 MG MILLIGRAM(S), CYCLICAL, INTRAVENOUS DRIP
     Route: 041
     Dates: start: 20150212, end: 20150212
  2. FOLINIC ACID [Concomitant]
     Active Substance: LEUCOVORIN
  3. COUMADIN [Concomitant]
     Active Substance: WARFARIN SODIUM
  4. FLUOROURACIL. [Concomitant]
     Active Substance: FLUOROURACIL
  5. BEVACIZUMAB [Concomitant]
     Active Substance: BEVACIZUMAB

REACTIONS (3)
  - Presyncope [None]
  - Abdominal pain [None]
  - Loss of consciousness [None]

NARRATIVE: CASE EVENT DATE: 20150212
